FAERS Safety Report 7013488-7 (Version None)
Quarter: 2010Q3

REPORT INFORMATION
  Report Type: 
  Country: None (occurrence: None)
  Receive Date: 20100924
  Receipt Date: 20100921
  Transmission Date: 20110219
  Serious: Yes (Other)
  Sender: FDA-Public Use
  Company Number: US-GENZYME-THYM-1001680

PATIENT
  Sex: Female
  Weight: 90.703 kg

DRUGS (11)
  1. THYMOGLOBULIN [Suspect]
     Indication: PROPHYLAXIS AGAINST TRANSPLANT REJECTION
     Dosage: 100 MG, QD
     Route: 042
     Dates: start: 20090319, end: 20090319
  2. THYMOGLOBULIN [Suspect]
     Dosage: 25 MG, QD
     Route: 042
     Dates: start: 20090322, end: 20090322
  3. THYMOGLOBULIN [Suspect]
     Dosage: 50 MG, QD
     Route: 042
     Dates: start: 20090404, end: 20090408
  4. THYMOGLOBULIN [Suspect]
     Dosage: UNK
     Route: 042
     Dates: start: 20090405, end: 20090408
  5. SOLU-MEDROL [Concomitant]
     Indication: PRODUCT USED FOR UNKNOWN INDICATION
     Route: 065
  6. PRILOSEC [Concomitant]
     Indication: PRODUCT USED FOR UNKNOWN INDICATION
     Route: 065
  7. NORVASC [Concomitant]
     Indication: PRODUCT USED FOR UNKNOWN INDICATION
     Route: 065
  8. LIPITOR [Concomitant]
     Indication: PRODUCT USED FOR UNKNOWN INDICATION
     Route: 065
  9. AMBIEN [Concomitant]
     Indication: PRODUCT USED FOR UNKNOWN INDICATION
     Route: 065
  10. TOPROL-XL [Concomitant]
     Indication: PRODUCT USED FOR UNKNOWN INDICATION
     Route: 065
  11. PLASMAPHERESIS [Concomitant]
     Indication: PRODUCT USED FOR UNKNOWN INDICATION
     Route: 065

REACTIONS (2)
  - OEDEMA [None]
  - PROTEIN URINE PRESENT [None]
